FAERS Safety Report 5804585-X (Version None)
Quarter: 2008Q3

REPORT INFORMATION
  Report Type: 
  Country: None (occurrence: None)
  Receive Date: 20080707
  Receipt Date: 20080707
  Transmission Date: 20090109
  Serious: No
  Sender: FDA-Public Use
  Company Number: None

PATIENT
  Age: 43 Year
  Sex: Male
  Weight: 78.47 kg

DRUGS (1)
  1. VARENICLINE [Suspect]
     Indication: SMOKING CESSATION THERAPY
     Dosage: 1 MG BID PO
     Route: 048
     Dates: start: 20080612, end: 20080630

REACTIONS (5)
  - ALTERED STATE OF CONSCIOUSNESS [None]
  - DEPRESSION [None]
  - FEELING ABNORMAL [None]
  - FORMICATION [None]
  - SUICIDAL IDEATION [None]
